FAERS Safety Report 20446911 (Version 1)
Quarter: 2022Q1

REPORT INFORMATION
  Report Type: Other
  Country: US (occurrence: None)
  Receive Date: 20220208
  Receipt Date: 20220208
  Transmission Date: 20220424
  Serious: No
  Sender: FDA-Public Use
  Company Number: US-ROCHE-3015019

PATIENT
  Age: 61 Year
  Sex: Male
  Weight: 74.910 kg

DRUGS (4)
  1. OCREVUS [Suspect]
     Active Substance: OCRELIZUMAB
     Indication: Multiple sclerosis
     Dosage: YES?300 MG IV ON DAY 1 AND DAY15?INFUSE 600MG INTRAVENOUSLY EVERY 24 WEEK(S)?DOT: 24/JAN/2022, 03/AU
     Route: 042
  2. BACLOFEN [Concomitant]
     Active Substance: BACLOFEN
     Indication: Muscle spasms
     Dosage: YES
     Dates: start: 2004
  3. GABAPENTIN [Concomitant]
     Active Substance: GABAPENTIN
     Indication: Neuralgia
     Dosage: DOSE IS UNKNOWN ;ONGOING: YES
     Dates: start: 2004
  4. AVONEX [Concomitant]
     Active Substance: INTERFERON BETA-1A

REACTIONS (1)
  - COVID-19 [Recovering/Resolving]

NARRATIVE: CASE EVENT DATE: 20220125
